FAERS Safety Report 4365976-X (Version None)
Quarter: 2004Q2

REPORT INFORMATION
  Report Type: 
  Country: None (occurrence: None)
  Receive Date: 20040526
  Receipt Date: 20040512
  Transmission Date: 20050107
  Serious: Yes (Hospitalization, Other)
  Sender: FDA-Public Use
  Company Number: 200411086DE

PATIENT
  Age: 64 Year
  Sex: Male
  Weight: 77 kg

DRUGS (4)
  1. TAXOTERE [Suspect]
     Indication: PROSTATE CANCER
     Route: 042
     Dates: start: 20040301, end: 20040301
  2. ESTRAMUSTIN [Suspect]
     Route: 048
     Dates: start: 20040301, end: 20040301
  3. EULEXIN [Concomitant]
     Indication: PROSTATE CANCER
     Route: 048
  4. ZOLADEX [Concomitant]
     Indication: PROSTATE CANCER
     Route: 058

REACTIONS (9)
  - DRUG TOXICITY [None]
  - DYSENTERY [None]
  - GENERAL PHYSICAL HEALTH DETERIORATION [None]
  - HYDRONEPHROSIS [None]
  - HYPERCHROMIC ANAEMIA [None]
  - METASTASES TO BONE [None]
  - OEDEMA [None]
  - RENAL FAILURE ACUTE [None]
  - URINARY TRACT INFECTION [None]
